FAERS Safety Report 8363413-1 (Version None)
Quarter: 2012Q2

REPORT INFORMATION
  Report Type: 
  Country: None (occurrence: None)
  Receive Date: 20120516
  Receipt Date: 20120312
  Transmission Date: 20120825
  Serious: Yes (Hospitalization)
  Sender: FDA-Public Use
  Company Number: US-ALEXION-A201101375

PATIENT
  Sex: Male
  Weight: 93.424 kg

DRUGS (5)
  1. KLONOPIN [Concomitant]
     Dosage: 1MG, TID, PRN
  2. PRILOSEC [Concomitant]
     Dosage: 40 MG, QD
  3. FOLIC ACID [Concomitant]
     Dosage: 1 MG, QD
  4. SOLIRIS [Suspect]
     Indication: PAROXYSMAL NOCTURNAL HAEMOGLOBINURIA
     Dosage: UNK (9 CYCLES)
     Route: 042
     Dates: start: 20110524, end: 20110830
  5. LORTAB [Concomitant]
     Dosage: 7.5 UNK, PRN

REACTIONS (9)
  - PALLOR [None]
  - PANCYTOPENIA [None]
  - IMMUNOSUPPRESSANT DRUG LEVEL INCREASED [None]
  - IRON OVERLOAD [None]
  - ASPARTATE AMINOTRANSFERASE INCREASED [None]
  - CHILLS [None]
  - BLOOD ALKALINE PHOSPHATASE INCREASED [None]
  - APLASTIC ANAEMIA [None]
  - ASTHENIA [None]
